FAERS Safety Report 4301402-4 (Version None)
Quarter: 2004Q1

REPORT INFORMATION
  Report Type: 
  Country: None (occurrence: None)
  Receive Date: 20040223
  Receipt Date: 20031222
  Transmission Date: 20041129
  Serious: No
  Sender: FDA-Public Use
  Company Number: US-GLAXOSMITHKLINE-A0443918A

PATIENT
  Age: 43 Year
  Sex: Female

DRUGS (6)
  1. NAVELBINE [Suspect]
     Dosage: 47MG CYCLIC
     Route: 042
     Dates: start: 20030601, end: 20031215
  2. HERCEPTIN [Concomitant]
  3. ZOFRAN [Concomitant]
  4. DECADRON [Concomitant]
  5. BENADRYL [Concomitant]
  6. TYLENOL (CAPLET) [Concomitant]

REACTIONS (1)
  - INJECTION SITE REACTION [None]
